FAERS Safety Report 16760602 (Version 1)
Quarter: 2019Q4

REPORT INFORMATION
  Report Type: Spontaneous
  Country: US (occurrence: US)
  Receive Date: 20190830
  Receipt Date: 20190830
  Transmission Date: 20200122
  Serious: Yes (Death)
  Sender: FDA-Public Use
  Company Number: None

PATIENT
  Age: 87 Year
  Sex: Male
  Weight: 81 kg

DRUGS (17)
  1. XALKORI [Suspect]
     Active Substance: CRIZOTINIB
     Indication: LUNG NEOPLASM MALIGNANT
     Route: 048
  2. DORZOLAMIDE HCL [Concomitant]
     Active Substance: DORZOLAMIDE HYDROCHLORIDE
  3. PROCHLORPERAZINE MALEATE. [Concomitant]
     Active Substance: PROCHLORPERAZINE MALEATE
  4. UROXATRAL [Concomitant]
     Active Substance: ALFUZOSIN HYDROCHLORIDE
  5. LACTULOSE. [Concomitant]
     Active Substance: LACTULOSE
  6. ALLOPURINOL. [Concomitant]
     Active Substance: ALLOPURINOL
  7. MILK OF MAGNESIA CONCENTRATE [Concomitant]
  8. VITAMIN D (CHOLECALCIFEROL) [Concomitant]
     Active Substance: CHOLECALCIFEROL
  9. GLIPIZIDE. [Concomitant]
     Active Substance: GLIPIZIDE
  10. ZOCOR [Concomitant]
     Active Substance: SIMVASTATIN
  11. AMLODIPINE BESYLATE. [Concomitant]
     Active Substance: AMLODIPINE BESYLATE
  12. COLCHICINE. [Concomitant]
     Active Substance: COLCHICINE
  13. OSTEO BI-FLEX REGULAR STRENGTH [Concomitant]
  14. ASPIRIN 81 [Concomitant]
     Active Substance: ASPIRIN
  15. METFORMIN HCL [Concomitant]
     Active Substance: METFORMIN HYDROCHLORIDE
  16. MULTIVITAMIN ADULT [Concomitant]
  17. TIMOLOL MALEATE. [Concomitant]
     Active Substance: TIMOLOL MALEATE

REACTIONS (1)
  - Death [None]

NARRATIVE: CASE EVENT DATE: 20190818
